FAERS Safety Report 18402326 (Version 1)
Quarter: 2020Q4

REPORT INFORMATION
  Report Type: Spontaneous
  Country: FR (occurrence: FR)
  Receive Date: 20201020
  Receipt Date: 20201020
  Transmission Date: 20210114
  Serious: Yes (Other)
  Sender: FDA-Public Use
  Company Number: FR-AUROBINDO-AUR-APL-2020-052241

PATIENT
  Age: 11 Year
  Sex: Female
  Weight: 28 kg

DRUGS (1)
  1. PARACETAMOL ARROW [Suspect]
     Active Substance: ACETAMINOPHEN
     Indication: POISONING DELIBERATE
     Dosage: 3600 MILLIGRAM
     Route: 048
     Dates: start: 20200701, end: 20200701

REACTIONS (2)
  - Abdominal pain [Recovered/Resolved]
  - Poisoning deliberate [Recovered/Resolved]

NARRATIVE: CASE EVENT DATE: 20200701
